FAERS Safety Report 20254789 (Version 1)
Quarter: 2021Q4

REPORT INFORMATION
  Report Type: Spontaneous
  Country: US (occurrence: None)
  Receive Date: 20211230
  Receipt Date: 20211230
  Transmission Date: 20220304
  Serious: Yes (Other)
  Sender: FDA-Public Use
  Company Number: US-ROCHE-2984299

PATIENT
  Sex: Male

DRUGS (1)
  1. XELODA [Suspect]
     Active Substance: CAPECITABINE
     Indication: Breast cancer metastatic
     Dosage: THERAPY START DATE /FEB/2019 AND STOP DATE /SEP/2019
     Route: 048

REACTIONS (2)
  - Bone disorder [Unknown]
  - Prostate cancer stage I [Recovered/Resolved]

NARRATIVE: CASE EVENT DATE: 20190101
